FAERS Safety Report 5211588-5 (Version None)
Quarter: 2007Q1

REPORT INFORMATION
  Report Type: 
  Country: None (occurrence: None)
  Receive Date: 20070117
  Receipt Date: 20070117
  Transmission Date: 20070707
  Serious: Yes (Life-Threatening, Hospitalization)
  Sender: FDA-Public Use
  Company Number: None

PATIENT
  Age: 61 Year
  Sex: Male
  Weight: 64.4108 kg

DRUGS (1)
  1. AMINOLEVULINIC ACID HCI  20% DUSA PHARMACEUTICALS [Suspect]
     Indication: ACTINIC KERATOSIS
     Dosage: 354 MG 1 TOP
     Route: 061
     Dates: start: 20060209, end: 20060209

REACTIONS (1)
  - CEREBROVASCULAR ACCIDENT [None]
